FAERS Safety Report 6337232-1 (Version None)
Quarter: 2009Q3

REPORT INFORMATION
  Report Type: 
  Country: None (occurrence: None)
  Receive Date: 20090902
  Receipt Date: 20090826
  Transmission Date: 20100115
  Serious: Yes (Hospitalization)
  Sender: FDA-Public Use
  Company Number: US-BIOGENIDEC-2009BI000546

PATIENT
  Age: 66 Year
  Sex: Female
  Weight: 85 kg

DRUGS (22)
  1. TYSABRI [Suspect]
     Indication: MULTIPLE SCLEROSIS
     Route: 042
     Dates: start: 20081208
  2. XANAX [Concomitant]
     Indication: ANXIETY
  3. XANAX [Concomitant]
  4. EFFEXOR XR [Concomitant]
     Indication: DEPRESSION
     Route: 048
  5. ATENOLOL [Concomitant]
     Indication: DRUG USE FOR UNKNOWN INDICATION
     Route: 048
  6. GLIPIZIDE [Concomitant]
     Indication: DRUG USE FOR UNKNOWN INDICATION
     Route: 048
  7. INSULIN [Concomitant]
     Indication: BLOOD GLUCOSE INCREASED
  8. PLAVIX [Concomitant]
     Indication: DRUG USE FOR UNKNOWN INDICATION
     Route: 048
  9. AVAPRO [Concomitant]
     Indication: DRUG USE FOR UNKNOWN INDICATION
     Route: 048
  10. TRIAMTERENE AND HYDROCHLOROTHIAZIDE [Concomitant]
     Indication: DRUG USE FOR UNKNOWN INDICATION
  11. LASIX [Concomitant]
     Indication: OEDEMA
  12. LASIX [Concomitant]
  13. TAZTIA [Concomitant]
     Indication: DRUG USE FOR UNKNOWN INDICATION
     Route: 048
  14. ACIPHEX [Concomitant]
     Indication: DRUG USE FOR UNKNOWN INDICATION
     Route: 048
  15. POTASSIUM CHLORIDE [Concomitant]
     Indication: DRUG USE FOR UNKNOWN INDICATION
     Route: 048
  16. SOMA [Concomitant]
     Indication: DRUG USE FOR UNKNOWN INDICATION
     Route: 048
  17. ALPRAZOLAM [Concomitant]
     Indication: DRUG USE FOR UNKNOWN INDICATION
     Route: 048
  18. OXYCONTIN [Concomitant]
     Indication: DRUG USE FOR UNKNOWN INDICATION
     Route: 048
  19. DULCOLAX [Concomitant]
     Indication: DRUG USE FOR UNKNOWN INDICATION
  20. AMBIEN CR [Concomitant]
     Indication: DRUG USE FOR UNKNOWN INDICATION
     Route: 048
  21. OTC REFRESH EYE DROPS [Concomitant]
     Indication: CATARACT
  22. DILAUDID [Concomitant]
     Indication: BACK PAIN

REACTIONS (24)
  - ANXIETY [None]
  - ARTHRALGIA [None]
  - ASTHENIA [None]
  - BACK PAIN [None]
  - BLOOD GLUCOSE INCREASED [None]
  - BLOOD SODIUM ABNORMAL [None]
  - CONFUSIONAL STATE [None]
  - DELIRIUM [None]
  - DEMENTIA ALZHEIMER'S TYPE [None]
  - DYSPNOEA [None]
  - EYE SWELLING [None]
  - FATIGUE [None]
  - HEADACHE [None]
  - HYPERTENSIVE CRISIS [None]
  - HYPOKALAEMIA [None]
  - MAJOR DEPRESSION [None]
  - MEMORY IMPAIRMENT [None]
  - METABOLIC DISORDER [None]
  - NASOPHARYNGITIS [None]
  - OEDEMA PERIPHERAL [None]
  - PARAESTHESIA [None]
  - PNEUMONIA [None]
  - STRESS [None]
  - VEIN DISORDER [None]
